FAERS Safety Report 14268696 (Version 2)
Quarter: 2018Q1

REPORT INFORMATION
  Report Type: Spontaneous
  Country: US (occurrence: US)
  Receive Date: 20171211
  Receipt Date: 20180206
  Transmission Date: 20180508
  Serious: No
  Sender: FDA-Public Use
  Company Number: US-JNJFOC-20171128002

PATIENT
  Age: 39 Year
  Sex: Male
  Weight: 76.2 kg

DRUGS (4)
  1. ZYRTEC [Suspect]
     Active Substance: CETIRIZINE HYDROCHLORIDE
     Indication: SLEEP DISORDER THERAPY
     Route: 065
  2. ZYRTEC [Suspect]
     Active Substance: CETIRIZINE HYDROCHLORIDE
     Indication: RESPIRATORY DISORDER
     Route: 065
  3. TYLENOL EXTRA STRENGTH [Suspect]
     Active Substance: ACETAMINOPHEN
     Indication: CHEST PAIN
     Route: 065
     Dates: start: 20171120
  4. AFRIN [Concomitant]
     Active Substance: OXYMETAZOLINE
     Indication: SLEEP DISORDER THERAPY
     Route: 065

REACTIONS (1)
  - Product use in unapproved indication [Unknown]
